FAERS Safety Report 6372574-5 (Version None)
Quarter: 2009Q3

REPORT INFORMATION
  Report Type: 
  Country: None (occurrence: None)
  Receive Date: 20090924
  Receipt Date: 20080926
  Transmission Date: 20100115
  Serious: No
  Sender: FDA-Public Use
  Company Number: US-ASTRAZENECA-2008UW20638

PATIENT

DRUGS (5)
  1. SEROQUEL [Suspect]
     Route: 048
     Dates: start: 20080917, end: 20080921
  2. SEROQUEL [Suspect]
     Route: 048
     Dates: start: 20080921
  3. COGENTIN [Concomitant]
  4. ATIVAN [Concomitant]
  5. CLONOPIN [Concomitant]

REACTIONS (1)
  - PAIN IN EXTREMITY [None]
